FAERS Safety Report 5007807-0 (Version None)
Quarter: 2006Q2

REPORT INFORMATION
  Report Type: 
  Country: None (occurrence: None)
  Receive Date: 20060522
  Receipt Date: 20060518
  Transmission Date: 20061013
  Serious: Yes (Hospitalization)
  Sender: FDA-Public Use
  Company Number: GXKR2006DE02754

PATIENT
  Age: 38 Year
  Sex: Male
  Weight: 76 kg

DRUGS (3)
  1. CEFUHEXAL [Suspect]
     Indication: APPENDICITIS
     Dosage: 1TAB PER DAY
     Route: 048
     Dates: start: 20051201, end: 20051201
  2. DOLORMIN [Concomitant]
     Indication: GASTRITIS
     Dosage: 1TAB PER DAY
     Route: 048
     Dates: start: 20051101, end: 20051201
  3. BUSCOPAN PLUS [Concomitant]
     Indication: REFLUX OESOPHAGITIS
     Dosage: 1TAB PER DAY
     Route: 048
     Dates: start: 20051201, end: 20051201

REACTIONS (1)
  - ANAEMIA HAEMOLYTIC AUTOIMMUNE [None]
